FAERS Safety Report 9968164 (Version 2)
Quarter: 2014Q4

REPORT INFORMATION
  Report Type: Spontaneous
  Country: BE (occurrence: BE)
  Receive Date: 20140306
  Receipt Date: 20141031
  Transmission Date: 20150529
  Serious: Yes (Other)
  Sender: FDA-Public Use
  Company Number: BE-ROCHE-1358813

PATIENT
  Age: 53 Year
  Sex: Female
  Weight: 97 kg

DRUGS (3)
  1. HERCEPTIN [Suspect]
     Active Substance: TRASTUZUMAB
     Indication: BREAST CANCER
     Dosage: 20/SEP/2013, RECEIVE DLAST PERFUSION OF TRASTUZUMAB
     Route: 042
     Dates: start: 20130405, end: 20131011
  2. FEMARA [Concomitant]
     Active Substance: LETROZOLE
     Indication: BREAST CANCER
     Route: 065
     Dates: start: 20130928
  3. TAXOTERE [Concomitant]
     Active Substance: DOCETAXEL
     Indication: BREAST CANCER
     Route: 065
     Dates: start: 20130405, end: 20130607

REACTIONS (5)
  - Congestive cardiomyopathy [Recovered/Resolved with Sequelae]
  - Hypokinesia [Unknown]
  - Weight decreased [Unknown]
  - Cardiac failure [Recovered/Resolved with Sequelae]
  - Lymphangitis [Unknown]

NARRATIVE: CASE EVENT DATE: 20131011
